FAERS Safety Report 22183867 (Version 1)
Quarter: 2023Q2

REPORT INFORMATION
  Report Type: Spontaneous
  Country: DE (occurrence: DE)
  Receive Date: 20230406
  Receipt Date: 20230406
  Transmission Date: 20230722
  Serious: Yes (Death, Hospitalization, Other)
  Sender: FDA-Public Use
  Company Number: DE-MYLANLABS-2023M1024967

PATIENT
  Sex: Female

DRUGS (2)
  1. RISPERIDONE [Suspect]
     Active Substance: RISPERIDONE
     Indication: Product used for unknown indication
     Dosage: UNK
     Route: 065
  2. BACLOFEN [Suspect]
     Active Substance: BACLOFEN
     Indication: Parkinson^s disease
     Dosage: 30 MILLIGRAM, ONCE A DAY (10 MILLIGRAM, THREE TIMES IN DAY)
     Route: 048

REACTIONS (10)
  - Renal failure [Fatal]
  - Shock [Fatal]
  - Abdominal compartment syndrome [Fatal]
  - Abdominal distension [Unknown]
  - Constipation [Unknown]
  - Urinary retention [Unknown]
  - Abnormal faeces [Unknown]
  - Musculoskeletal discomfort [Unknown]
  - Full blood count abnormal [Unknown]
  - Vomiting [Unknown]
